FAERS Safety Report 8160235-1 (Version None)
Quarter: 2012Q1

REPORT INFORMATION
  Report Type: 
  Country: None (occurrence: None)
  Receive Date: 20120223
  Receipt Date: 20120209
  Transmission Date: 20120608
  Serious: Yes (Hospitalization)
  Sender: FDA-Public Use
  Company Number: US-UCBSA-050504

PATIENT
  Age: 43 Year
  Sex: Male
  Weight: 80.2 kg

DRUGS (11)
  1. FOLIC ACID [Concomitant]
     Indication: RHEUMATOID ARTHRITIS
     Route: 048
     Dates: start: 20110312
  2. PREDNISONE [Concomitant]
     Route: 048
     Dates: start: 20110502
  3. CERTOLIZUMAB PEGOL [Suspect]
     Indication: RHEUMATOID ARTHRITIS
     Dosage: DOSE:200 MG
     Route: 058
     Dates: start: 20110711, end: 20120202
  4. FOLIC ACID [Concomitant]
     Indication: BONE DISORDER
     Route: 048
     Dates: start: 20110312
  5. CENTRUM [Concomitant]
     Indication: SUPPLEMENTATION THERAPY
     Route: 048
     Dates: start: 20100501
  6. CITRACAL [Concomitant]
     Indication: SUPPLEMENTATION THERAPY
     Route: 048
     Dates: start: 20100501
  7. NAPROXEN [Concomitant]
     Indication: PAIN
     Route: 048
     Dates: start: 20110312
  8. CLARITIN [Concomitant]
     Indication: HYPERSENSITIVITY
     Route: 048
     Dates: start: 20110919
  9. FOLIC ACID [Concomitant]
     Indication: VITAMIN SUPPLEMENTATION
     Route: 048
     Dates: start: 20110312
  10. CERTOLIZUMAB PEGOL [Suspect]
     Dosage: DOSE:400 MG
     Route: 058
     Dates: start: 20110531, end: 20110627
  11. PREDNISONE [Concomitant]
     Indication: RHEUMATOID ARTHRITIS
     Route: 048
     Dates: start: 20100120

REACTIONS (2)
  - INFECTION [None]
  - CELLULITIS [None]
